FAERS Safety Report 8764912 (Version 1)
Quarter: 2012Q4

REPORT INFORMATION
  Report Type: 
  Country: US (occurrence: US)
  Receive Date: 20120902
  Receipt Date: 20120902
  Transmission Date: 20130627
  Serious: Yes (Life-Threatening, Hospitalization)
  Sender: FDA-Public Use
  Company Number: US-009507513-1208USA011066

PATIENT

DRUGS (15)
  1. PRINIVIL [Suspect]
     Dosage: 10 mg, qd
     Route: 048
  2. DESIPRAMINE HYDROCHLORIDE [Concomitant]
     Dosage: 75 mg, qd
     Route: 048
  3. DILTIAZEM CD [Concomitant]
     Dosage: 240 mg, qd
     Route: 048
  4. METFORMIN [Concomitant]
     Dosage: 500 mg, bid
     Route: 048
  5. HYDROCHLOROTHIAZIDE [Suspect]
     Dosage: 25 mg, qd
     Route: 048
  6. LOVASTATIN [Concomitant]
     Dosage: 40 mg, qd
  7. GLIPIZIDE XL [Concomitant]
     Dosage: 2.5 mg, qd
  8. DEPAKOTE [Concomitant]
     Dosage: 500 mg, qid
  9. JANUVIA [Concomitant]
     Dosage: 100 mg, qd
     Route: 048
  10. MIRAPEX [Concomitant]
     Dosage: 0.25 mg, qd
  11. ZOLPIDEM TARTRATE [Concomitant]
     Dosage: 10 mg, qd
  12. WELLBUTRIN [Concomitant]
     Dosage: 300 mg, qd
  13. UROXATRAL [Concomitant]
     Dosage: 10 mg, qd
  14. TUMS ULTRA [Concomitant]
     Dosage: 3-4 tablet
     Route: 048
  15. CHOLECALCIFEROL [Concomitant]
     Dosage: 1000 IU, qd

REACTIONS (1)
  - Hypercalcaemia [Recovered/Resolved]
